FAERS Safety Report 9279083 (Version 1)
Quarter: 2013Q2

REPORT INFORMATION
  Report Type: Spontaneous
  Country: HR (occurrence: HR)
  Receive Date: 20130508
  Receipt Date: 20130508
  Transmission Date: 20140414
  Serious: Yes (Other)
  Sender: FDA-Public Use
  Company Number: HR-MERCK-1305HRV002261

PATIENT
  Age: 71 Year
  Sex: Female

DRUGS (4)
  1. JANUVIA [Suspect]
     Dosage: 100 MG, QD
     Route: 048
     Dates: start: 20130114, end: 2013
  2. GLUCOPHAGE [Concomitant]
     Dosage: 1000 MG, BID
     Route: 048
  3. BETAGLID [Concomitant]
     Dosage: 3 MG, BID
     Route: 048
  4. PLIVIT D3 [Concomitant]
     Dosage: 4 GTT, QD

REACTIONS (1)
  - Palpitations [Recovered/Resolved]
